FAERS Safety Report 7313910-2 (Version None)
Quarter: 2011Q1

REPORT INFORMATION
  Report Type: 
  Country: None (occurrence: None)
  Receive Date: 20110225
  Receipt Date: 20110222
  Transmission Date: 20110831
  Serious: Yes (Hospitalization)
  Sender: FDA-Public Use
  Company Number: US-BRISTOL-MYERS SQUIBB COMPANY-15564701

PATIENT
  Age: 55 Year
  Sex: Male

DRUGS (14)
  1. OXALIPLATIN [Suspect]
     Indication: COLORECTAL CANCER METASTATIC
     Route: 042
     Dates: start: 20110209
  2. ENALAPRIL MALEATE [Concomitant]
     Indication: HYPERTENSION
     Route: 048
     Dates: start: 20090101
  3. MILK OF MAGNESIA TAB [Concomitant]
     Indication: CONSTIPATION
     Dosage: 1 DF=1-2 TABS
     Route: 048
     Dates: start: 20090101
  4. REGLAN [Concomitant]
     Indication: NAUSEA
     Dosage: Q6H
     Route: 048
     Dates: start: 20090101
  5. CETUXIMAB [Suspect]
     Indication: COLORECTAL CANCER METASTATIC
     Route: 042
     Dates: start: 20110209
  6. TURMERIC [Concomitant]
     Dosage: 1 DF =3/4 TSP,TURMERIC POWDER
     Route: 048
     Dates: start: 20090101
  7. LEUCOVORIN CALCIUM [Suspect]
     Indication: COLORECTAL CANCER METASTATIC
     Route: 042
     Dates: start: 20110209
  8. WHEAT GRASS [Concomitant]
     Dosage: 1 DF = 3 OZ
     Route: 048
     Dates: start: 20090101
  9. DASATIMIB [Suspect]
     Indication: COLORECTAL CANCER METASTATIC
     Route: 048
     Dates: start: 20110209, end: 20110221
  10. ADVIL [Concomitant]
     Indication: PAIN
     Route: 048
     Dates: start: 20101201
  11. DOXYCYCLINE [Concomitant]
     Route: 048
  12. REGLAN [Concomitant]
     Indication: VOMITING
     Dosage: Q6H
     Route: 048
     Dates: start: 20090101
  13. FLUOROURACIL [Suspect]
     Indication: COLORECTAL CANCER METASTATIC
     Dosage: 2X 46 HOUR
     Route: 042
     Dates: start: 20110209
  14. METOPROLOL SUCCINATE [Concomitant]
     Indication: HYPERTENSION
     Route: 048
     Dates: start: 20090101

REACTIONS (1)
  - GASTROINTESTINAL HAEMORRHAGE [None]
